FAERS Safety Report 9120196 (Version 1)
Quarter: 2013Q1

REPORT INFORMATION
  Report Type: Spontaneous
  Country: US (occurrence: US)
  Receive Date: 20130226
  Receipt Date: 20130226
  Transmission Date: 20140127
  Serious: Yes (Other)
  Sender: FDA-Public Use
  Company Number: US-PFIZER INC-2013067124

PATIENT
  Sex: Male

DRUGS (2)
  1. SKELAXIN [Suspect]
     Indication: SPINAL COLUMN STENOSIS
     Dosage: UNK
  2. SKELAXIN [Suspect]
     Indication: PAIN

REACTIONS (2)
  - Hypertension [Unknown]
  - Proteinuria [Unknown]
